FAERS Safety Report 4330932-4 (Version None)
Quarter: 2004Q1

REPORT INFORMATION
  Report Type: 
  Country: None (occurrence: None)
  Receive Date: 20040329
  Receipt Date: 19960904
  Transmission Date: 20041129
  Serious: Yes (Death, Life-Threatening, Hospitalization)
  Sender: FDA-Public Use
  Company Number: WAES 96090705

PATIENT
  Age: 1 Day
  Sex: Female

DRUGS (1)
  1. INDOCIN I.V. [Suspect]
     Indication: PATENT DUCTUS ARTERIOSUS
     Dosage: 90 MICROGM/DAILY, IV
     Route: 042
     Dates: start: 19960301, end: 19960301

REACTIONS (7)
  - BACTERIAL SEPSIS [None]
  - GASTROINTESTINAL HAEMORRHAGE [None]
  - HAEMORRHAGE INTRACRANIAL [None]
  - MULTI-ORGAN FAILURE [None]
  - OLIGURIA [None]
  - RENAL IMPAIRMENT [None]
  - THROMBOCYTOPENIA NEONATAL [None]
